FAERS Safety Report 20331588 (Version 1)
Quarter: 2022Q1

REPORT INFORMATION
  Report Type: Spontaneous
  Country: FR (occurrence: FR)
  Receive Date: 20220113
  Receipt Date: 20220113
  Transmission Date: 20220424
  Serious: Yes (Congenital Anomaly)
  Sender: FDA-Public Use
  Company Number: None

PATIENT
  Sex: Female

DRUGS (4)
  1. DOXORUBICIN [Suspect]
     Active Substance: DOXORUBICIN
     Indication: Sarcoma
     Dosage: C1J1 (MOTHER)
     Route: 064
     Dates: start: 20201110
  2. DOXORUBICIN [Suspect]
     Active Substance: DOXORUBICIN
     Dosage: C2J1 (MOTHER)
     Route: 064
     Dates: start: 20201202
  3. IFOSFAMIDE [Suspect]
     Active Substance: IFOSFAMIDE
     Indication: Sarcoma
     Dosage: C2J1 (MOTHER)
     Route: 064
     Dates: start: 20201202
  4. IFOSFAMIDE [Suspect]
     Active Substance: IFOSFAMIDE
     Dosage: C1J1 (MOTHER)
     Route: 064
     Dates: start: 20201110

REACTIONS (3)
  - Acute kidney injury [Recovered/Resolved]
  - Foetal growth restriction [Not Recovered/Not Resolved]
  - Oligohydramnios [Not Recovered/Not Resolved]

NARRATIVE: CASE EVENT DATE: 20201207
